FAERS Safety Report 14943070 (Version 5)
Quarter: 2018Q3

REPORT INFORMATION
  Report Type: Spontaneous
  Country: ES (occurrence: ES)
  Receive Date: 20180528
  Receipt Date: 20180814
  Transmission Date: 20181010
  Serious: Yes (Hospitalization, Other)
  Sender: FDA-Public Use
  Company Number: ES-AUROBINDO-AUR-APL-2018-027573

PATIENT
  Age: 91 Year
  Sex: Female

DRUGS (7)
  1. HYDROCHLOROTHIAZIDE. [Interacting]
     Active Substance: HYDROCHLOROTHIAZIDE
     Indication: DIURETIC THERAPY
  2. IBUPROFEN. [Suspect]
     Active Substance: IBUPROFEN
     Indication: ARTHRALGIA
     Dosage: 600 MG, QD
     Route: 065
  3. TELMISARTAN. [Interacting]
     Active Substance: TELMISARTAN
     Indication: ARTHRALGIA
     Dosage: 80 MG, QD
     Route: 065
  4. HYDROCHLOROTHIAZIDE. [Interacting]
     Active Substance: HYDROCHLOROTHIAZIDE
     Indication: ARTHRALGIA
     Dosage: 25 MG, QD
     Route: 065
  5. TELMISARTAN. [Interacting]
     Active Substance: TELMISARTAN
     Indication: HYPERTENSION
  6. ESOMEPRAZOLE [Concomitant]
     Active Substance: ESOMEPRAZOLE
     Indication: ARTHRALGIA
     Dosage: 40 MILLIGRAM, ONCE A DAY, 1
     Route: 065
  7. ROSUVASTATIN. [Suspect]
     Active Substance: ROSUVASTATIN
     Indication: HYPERCHOLESTEROLAEMIA
     Dosage: 20 MILLIGRAM
     Route: 065

REACTIONS (8)
  - Toxicity to various agents [Unknown]
  - Off label use [Unknown]
  - Muscular weakness [Unknown]
  - Flank pain [Unknown]
  - Drug interaction [Recovered/Resolved]
  - Rhabdomyolysis [Recovered/Resolved]
  - Oliguria [Recovered/Resolved]
  - Acute kidney injury [Recovered/Resolved]
